FAERS Safety Report 16000454 (Version 3)
Quarter: 2025Q3

REPORT INFORMATION
  Report Type: Spontaneous
  Country: EU (occurrence: EU)
  Receive Date: 20190225
  Receipt Date: 20250902
  Transmission Date: 20251021
  Serious: Yes (Death, Other)
  Sender: MYLAN
  Company Number: EU-SA-2018SA218659

PATIENT
  Age: 57 Year
  Sex: Female

DRUGS (11)
  1. MYCOPHENOLATE MOFETIL [Suspect]
     Active Substance: MYCOPHENOLATE MOFETIL
     Indication: Immunosuppressant drug therapy
     Dosage: 1000 MILLIGRAM, QD
  2. MYCOPHENOLATE MOFETIL [Suspect]
     Active Substance: MYCOPHENOLATE MOFETIL
     Indication: Transplant rejection
  3. METHYLPREDNISOLONE [Suspect]
     Active Substance: METHYLPREDNISOLONE
     Indication: Immunosuppressant drug therapy
  4. METHYLPREDNISOLONE [Suspect]
     Active Substance: METHYLPREDNISOLONE
     Indication: Transplant rejection
  5. RITUXIMAB [Suspect]
     Active Substance: RITUXIMAB
     Indication: Transplant rejection
  6. PRIVIGEN [Suspect]
     Active Substance: HUMAN IMMUNOGLOBULIN G
     Indication: Transplant rejection
  7. THYMOGLOBULINE [Suspect]
     Active Substance: LAPINE T-LYMPHOCYTE IMMUNE GLOBULIN
     Indication: Transplant rejection
  8. CYCLOSPORINE [Suspect]
     Active Substance: CYCLOSPORINE
     Indication: Immunosuppressant drug therapy
  9. CYCLOSPORINE [Suspect]
     Active Substance: CYCLOSPORINE
     Indication: Transplant rejection
  10. ASPIRIN [Concomitant]
     Active Substance: ASPIRIN
  11. DOBUTAMINE [Concomitant]
     Active Substance: DOBUTAMINE HYDROCHLORIDE
     Indication: Cardiogenic shock

REACTIONS (4)
  - Septic shock [Fatal]
  - Heart transplant rejection [Fatal]
  - Complications of transplanted heart [Fatal]
  - Cardiogenic shock [Fatal]
